FAERS Safety Report 8598081-7 (Version None)
Quarter: 2012Q3

REPORT INFORMATION
  Report Type: 
  Country: None (occurrence: None)
  Receive Date: 20120816
  Receipt Date: 20120523
  Transmission Date: 20120928
  Serious: No
  Sender: FDA-Public Use
  Company Number: US-009507513-1208USA003261

PATIENT

DRUGS (1)
  1. COPPERTONE ULTRAGUARD LOTION SPF-70+ [Suspect]
     Indication: PRODUCT USED FOR UNKNOWN INDICATION
     Dosage: UNK, UNKNOWN
     Route: 061
     Dates: start: 20120519

REACTIONS (2)
  - RASH [None]
  - HYPERSENSITIVITY [None]
